FAERS Safety Report 8188006-0 (Version None)
Quarter: 2012Q1

REPORT INFORMATION
  Report Type: 
  Country: None (occurrence: None)
  Receive Date: 20120306
  Receipt Date: 20120216
  Transmission Date: 20120608
  Serious: No
  Sender: FDA-Public Use
  Company Number: US-ROXANE LABORATORIES, INC.-2012-RO-00691RO

PATIENT
  Age: 55 Year
  Sex: Male

DRUGS (5)
  1. ADVAIR DISKUS 100/50 [Concomitant]
  2. NEXIUM [Concomitant]
  3. ALBUTEROL [Concomitant]
  4. CLARINEX [Concomitant]
  5. FLUTICASONE PROPIONATE [Suspect]
     Indication: SINUS DISORDER
     Route: 045
     Dates: start: 20111202

REACTIONS (5)
  - ABDOMINAL PAIN [None]
  - INFLUENZA LIKE ILLNESS [None]
  - OESOPHAGEAL DISORDER [None]
  - COUGH [None]
  - RHINORRHOEA [None]
